FAERS Safety Report 9095789 (Version 1)
Quarter: 2013Q1

REPORT INFORMATION
  Report Type: Spontaneous
  Country: US (occurrence: US)
  Receive Date: 20130219
  Receipt Date: 20130219
  Transmission Date: 20140127
  Serious: No
  Sender: FDA-Public Use
  Company Number: US-BAUSCH-BL-2012-000421

PATIENT
  Age: 50 Year
  Sex: Female

DRUGS (1)
  1. NEOMYCIN AND POLYMYXIN B SULFATES AND HYDROCORTISONE [Suspect]
     Indication: OFF LABEL USE
     Dosage: 2 DROPS IN LEFT EYE, ONCE
     Route: 047
     Dates: start: 20120724, end: 20120724

REACTIONS (2)
  - Incorrect route of drug administration [Recovered/Resolved]
  - Eye irritation [Recovering/Resolving]
